FAERS Safety Report 6231766-6 (Version None)
Quarter: 2009Q2

REPORT INFORMATION
  Report Type: 
  Country: None (occurrence: None)
  Receive Date: 20090616
  Receipt Date: 20090608
  Transmission Date: 20091009
  Serious: Yes (Other)
  Sender: FDA-Public Use
  Company Number: PHHY2009SG22680

PATIENT

DRUGS (1)
  1. ACLASTA [Suspect]

REACTIONS (1)
  - CIRCULATORY COLLAPSE [None]
